FAERS Safety Report 23954382 (Version 1)
Quarter: 2024Q2

REPORT INFORMATION
  Report Type: Other
  Country: US (occurrence: None)
  Receive Date: 20240609
  Receipt Date: 20240609
  Transmission Date: 20240716
  Serious: No
  Sender: FDA-Public Use
  Company Number: US-ROCHE-3459852

PATIENT
  Age: 63 Year
  Sex: Male

DRUGS (6)
  1. ATEZOLIZUMAB [Suspect]
     Active Substance: ATEZOLIZUMAB
     Indication: Retroperitoneal lymphadenopathy
     Dosage: 12 CYCLES
     Route: 041
  2. ATEZOLIZUMAB [Suspect]
     Active Substance: ATEZOLIZUMAB
     Indication: Recurrent cancer
  3. METHOTREXATE [Concomitant]
     Active Substance: METHOTREXATE
  4. ETOPOSIDE [Concomitant]
     Active Substance: ETOPOSIDE
  5. ADRIAMYCIN [Concomitant]
     Active Substance: DOXORUBICIN HYDROCHLORIDE
  6. CISPLATIN [Concomitant]
     Active Substance: CISPLATIN

REACTIONS (1)
  - Disease progression [Unknown]
